FAERS Safety Report 8203411-1 (Version None)
Quarter: 2012Q1

REPORT INFORMATION
  Report Type: 
  Country: None (occurrence: None)
  Receive Date: 20120312
  Receipt Date: 20120302
  Transmission Date: 20120608
  Serious: Yes (Other)
  Sender: FDA-Public Use
  Company Number: US-ASTRAZENECA-2011SE73507

PATIENT
  Age: 71 Year
  Sex: Female

DRUGS (18)
  1. HIZENTRA [Concomitant]
  2. NEILMED SINUS RINSE [Concomitant]
  3. OMEPRAZOLE MAGNESIUM [Concomitant]
  4. SIMVASTATIN [Concomitant]
  5. HYDROCODONE BITARTRATE AND ACETAMINOPHEN [Concomitant]
     Dosage: 10-325 MG 1-2 PILLS EVERY 4-6 HOURS, AS NEEDED
  6. PAXIL [Concomitant]
  7. BACTRIM [Concomitant]
     Dosage: 800/160 ONCE A DAY
  8. FLONASE [Concomitant]
     Dosage: 1 X DAILY TWO SPRAYS IN EACH NOSTRIL
     Route: 045
  9. CLARITIN [Concomitant]
  10. DAILY FIBER [Concomitant]
  11. PRILOSEC [Concomitant]
     Route: 048
  12. VITAMIN D [Concomitant]
     Dosage: 5000 MG
  13. PROVENTIL [Concomitant]
     Dosage: AS NEEDED
  14. SYMBICORT [Suspect]
     Dosage: 160/4.5 MCG 2 PUFFS TWO TIMES PER DAY
     Route: 055
  15. XANAX [Concomitant]
  16. TYLENOL EXTRA STRENGTH PM [Concomitant]
  17. PROBIOTIC [Concomitant]
  18. ANTIBIOTICS [Concomitant]
     Dosage: DAILY ONCE A DAY

REACTIONS (4)
  - LUNG NEOPLASM MALIGNANT [None]
  - IMMUNODEFICIENCY COMMON VARIABLE [None]
  - NEOPLASM MALIGNANT [None]
  - MALAISE [None]
